FAERS Safety Report 8808660 (Version 1)
Quarter: 2012Q4

REPORT INFORMATION
  Report Type: Spontaneous
  Country: US (occurrence: None)
  Receive Date: 20120921
  Receipt Date: 20120921
  Transmission Date: 20130627
  Serious: No
  Sender: FDA-Public Use
  Company Number: None

PATIENT
  Sex: Female
  Weight: 112.04 kg

DRUGS (2)
  1. ZOCOR [Suspect]
     Indication: HYPERLIPIDEMIA
     Dosage: 20 mg 1 po daily po
     Route: 048
     Dates: start: 20100308, end: 20100712
  2. LOVASTATIN [Suspect]
     Dosage: 20 mg 1 po QHS po
     Route: 048
     Dates: start: 20100712, end: 20100820

REACTIONS (1)
  - Pain [None]
